FAERS Safety Report 21843264 (Version 1)
Quarter: 2023Q1

REPORT INFORMATION
  Report Type: Spontaneous
  Country: IT (occurrence: IT)
  Receive Date: 20230110
  Receipt Date: 20230110
  Transmission Date: 20230418
  Serious: Yes (Other)
  Sender: FDA-Public Use
  Company Number: None

PATIENT
  Age: 71 Year
  Sex: Female

DRUGS (4)
  1. CETUXIMAB [Suspect]
     Active Substance: CETUXIMAB
     Indication: Colon cancer
     Dosage: 671.5 MG, UNKNOWN
     Route: 042
     Dates: start: 20220809, end: 20221123
  2. OXALIPLATIN [Suspect]
     Active Substance: OXALIPLATIN
     Indication: Colon cancer
     Dosage: 114.6 MG, UNKNOWN
     Route: 042
     Dates: start: 20220809, end: 20221123
  3. FLUOROURACIL [Suspect]
     Active Substance: FLUOROURACIL
     Indication: Colon cancer
     Dosage: 3223.2 MG, UNKNOWN
     Route: 042
     Dates: start: 20220809, end: 20221123
  4. FLUOROURACIL [Suspect]
     Active Substance: FLUOROURACIL
     Dosage: 537.2 MG, UNKNOWN
     Route: 042
     Dates: start: 20220809, end: 20221123

REACTIONS (3)
  - Eye irritation [Recovering/Resolving]
  - Eyelid oedema [Recovering/Resolving]
  - Lacrimation increased [Recovering/Resolving]

NARRATIVE: CASE EVENT DATE: 20221206
